FAERS Safety Report 7440029-2 (Version None)
Quarter: 2011Q2

REPORT INFORMATION
  Report Type: 
  Country: None (occurrence: None)
  Receive Date: 20110427
  Receipt Date: 20110420
  Transmission Date: 20111010
  Serious: Yes (Death, Hospitalization)
  Sender: FDA-Public Use
  Company Number: PHHY2011JP22210

PATIENT
  Sex: Male

DRUGS (11)
  1. DUROTEP JANSSEN [Concomitant]
     Dosage: UNK
     Route: 062
     Dates: end: 20110228
  2. PANALDINE [Concomitant]
     Dosage: 200 MG, UNK
  3. UBRETID [Concomitant]
     Dosage: 5 MG, UNK
     Route: 048
  4. DUROTEP JANSSEN [Concomitant]
     Route: 062
  5. NITOROL [Concomitant]
     Dosage: 40 MG, UNK
  6. ZOMETA [Suspect]
     Indication: METASTASES TO BONE
     Dosage: UNK
     Route: 041
     Dates: start: 20090225, end: 20101001
  7. BICALUTAMIDE [Concomitant]
     Dosage: 80 MG, UNK
     Route: 048
  8. URIEF [Concomitant]
     Dosage: 8 MG, UNK
  9. PREDNISOLONE [Concomitant]
     Dosage: 7.5 MG, UNK
  10. UFT [Concomitant]
     Dosage: 450 MG, UNK
  11. ESTRACYT [Concomitant]
     Dosage: 626.8 MG, UNK
     Route: 048

REACTIONS (16)
  - PURULENCE [None]
  - BONE SWELLING [None]
  - GINGIVAL ERYTHEMA [None]
  - GINGIVITIS [None]
  - NEOPLASM MALIGNANT [None]
  - OSTEONECROSIS OF JAW [None]
  - BACTERIAL INFECTION [None]
  - TENDERNESS [None]
  - DENTAL FISTULA [None]
  - PYREXIA [None]
  - GENERAL PHYSICAL HEALTH DETERIORATION [None]
  - PAIN IN JAW [None]
  - BONE DISORDER [None]
  - FEELING HOT [None]
  - OXYGEN SATURATION DECREASED [None]
  - PULPITIS DENTAL [None]
